FAERS Safety Report 20475611 (Version 1)
Quarter: 2022Q1

REPORT INFORMATION
  Report Type: Spontaneous
  Country: US (occurrence: None)
  Receive Date: 20220215
  Receipt Date: 20220215
  Transmission Date: 20220424
  Serious: Yes (Death)
  Sender: FDA-Public Use
  Company Number: None

PATIENT
  Age: 40 Year
  Sex: Male
  Weight: 105.9 kg

DRUGS (4)
  1. IPILIMUMAB [Suspect]
     Active Substance: IPILIMUMAB
     Dates: end: 20211228
  2. NIVOLUMAB [Suspect]
     Active Substance: NIVOLUMAB
     Dates: end: 20211228
  3. DABRAFENIB [Concomitant]
     Active Substance: DABRAFENIB
  4. TRAMETINIB [Concomitant]
     Active Substance: TRAMETINIB

REACTIONS (5)
  - Cardiac arrest [None]
  - Hypoxia [None]
  - Multiple organ dysfunction syndrome [None]
  - Acute kidney injury [None]
  - Air embolism [None]

NARRATIVE: CASE EVENT DATE: 20220127
